FAERS Safety Report 9841308 (Version 1)
Quarter: 2013Q4

REPORT INFORMATION
  Report Type: Spontaneous
  Country: US (occurrence: None)
  Receive Date: 20131211
  Receipt Date: 20131211
  Transmission Date: 20140711
  Serious: Yes (Other)
  Sender: FDA-Public Use
  Company Number: SPV1-2009-00095

PATIENT
  Age: 9 Year
  Sex: Male

DRUGS (1)
  1. ELAPRASE [Suspect]
     Indication: MUCOPOLYSACCHARIDOSIS II
     Route: 041
     Dates: start: 2007, end: 200901

REACTIONS (4)
  - Drug ineffective [None]
  - Upper respiratory tract congestion [None]
  - Dysphagia [None]
  - Walking disability [None]
